FAERS Safety Report 13446470 (Version 1)
Quarter: 2017Q2

REPORT INFORMATION
  Report Type: Spontaneous
  Country: CA (occurrence: US)
  Receive Date: 20170414
  Receipt Date: 20170414
  Transmission Date: 20170830
  Serious: Yes (Hospitalization)
  Sender: FDA-Public Use
  Company Number: None

PATIENT
  Age: 67 Year
  Sex: Male
  Weight: 80 kg

DRUGS (2)
  1. LEUPROLIDE ACETATE. [Suspect]
     Active Substance: LEUPROLIDE ACETATE
     Dates: end: 20170105
  2. CASODEX [Suspect]
     Active Substance: BICALUTAMIDE
     Dates: end: 20170327

REACTIONS (5)
  - Malaise [None]
  - Haematuria [None]
  - Blood creatinine increased [None]
  - Pain [None]
  - Urinary retention [None]

NARRATIVE: CASE EVENT DATE: 20170328
